FAERS Safety Report 21027500 (Version 1)
Quarter: 2022Q2

REPORT INFORMATION
  Report Type: Spontaneous
  Country: US (occurrence: None)
  Receive Date: 20220630
  Receipt Date: 20220630
  Transmission Date: 20220721
  Serious: Yes (Hospitalization, Other)
  Sender: FDA-Public Use
  Company Number: US-MLMSERVICE-20220621-3629128-1

PATIENT
  Sex: Female

DRUGS (1)
  1. PREDNISONE [Suspect]
     Active Substance: PREDNISONE
     Indication: Necrobiosis lipoidica diabeticorum
     Dosage: UNKNOWN
     Route: 065

REACTIONS (2)
  - Diabetic ketoacidosis [Unknown]
  - Blood glucose abnormal [Unknown]
